FAERS Safety Report 12203305 (Version 1)
Quarter: 2016Q1

REPORT INFORMATION
  Report Type: Spontaneous
  Country: US (occurrence: None)
  Receive Date: 20160321
  Receipt Date: 20160321
  Transmission Date: 20160526
  Serious: Yes (Other)
  Sender: FDA-Public Use
  Company Number: None

PATIENT
  Age: 59 Year
  Sex: Male

DRUGS (3)
  1. AMIODARONE 200 MG [Suspect]
     Active Substance: AMIODARONE
  2. AZITHROMYCIN 500 MG [Suspect]
     Active Substance: AZITHROMYCIN ANHYDROUS
  3. LEVOFLOXACIN 250 MG [Suspect]
     Active Substance: LEVOFLOXACIN

REACTIONS (2)
  - Cardiac failure [None]
  - Electrocardiogram QT prolonged [None]

NARRATIVE: CASE EVENT DATE: 20150309
